FAERS Safety Report 24005193 (Version 2)
Quarter: 2024Q3

REPORT INFORMATION
  Report Type: Spontaneous
  Country: JP (occurrence: JP)
  Receive Date: 20240624
  Receipt Date: 20240716
  Transmission Date: 20241017
  Serious: Yes (Hospitalization)
  Sender: DAIICHI
  Company Number: JP-DSJP-DSJ-2024-127106

PATIENT
  Age: 77 Year
  Sex: Female

DRUGS (1)
  1. EDOXABAN TOSYLATE [Suspect]
     Active Substance: EDOXABAN TOSYLATE
     Indication: Product used for unknown indication
     Dosage: UNK
     Route: 048

REACTIONS (5)
  - Cardiac failure [Unknown]
  - Aphasia [Unknown]
  - Cerebral infarction [Unknown]
  - Cerebellar haemorrhage [Unknown]
  - Cerebral infarction [Recovering/Resolving]
